FAERS Safety Report 17402573 (Version 1)
Quarter: 2020Q1

REPORT INFORMATION
  Report Type: Spontaneous
  Country: US (occurrence: US)
  Receive Date: 20200210
  Receipt Date: 20200210
  Transmission Date: 20200409
  Serious: Yes (Other)
  Sender: FDA-Public Use
  Company Number: None

PATIENT
  Age: 14 Year
  Sex: Male

DRUGS (3)
  1. PROBIOTIC [Suspect]
     Active Substance: PROBIOTICS NOS
  2. DOXYCYCLINE MONO [Suspect]
     Active Substance: DOXYCYCLINE
     Indication: ACNE
     Dosage: ?          QUANTITY:30 TABLET(S);?
     Route: 048
  3. MULTIVITAMIN [Suspect]
     Active Substance: VITAMINS

REACTIONS (5)
  - Intentional self-injury [None]
  - Suicidal ideation [None]
  - Skin laceration [None]
  - Depression [None]
  - Suicide attempt [None]

NARRATIVE: CASE EVENT DATE: 20191219
